FAERS Safety Report 9226071 (Version 2)
Quarter: 2013Q2

REPORT INFORMATION
  Report Type: Report from Study
  Country: US (occurrence: US)
  Receive Date: 20130411
  Receipt Date: 20130418
  Transmission Date: 20140414
  Serious: Yes (Other)
  Sender: FDA-Public Use
  Company Number: US-JNJFOC-20130405292

PATIENT
  Age: 64 Year
  Sex: Male
  Weight: 97.52 kg

DRUGS (11)
  1. SIMPONI [Suspect]
     Indication: PSORIATIC ARTHROPATHY
     Route: 058
     Dates: start: 201204, end: 201205
  2. SIMPONI [Suspect]
     Indication: PSORIATIC ARTHROPATHY
     Route: 058
     Dates: start: 201206
  3. LISINOPRIL HCTZ [Concomitant]
     Indication: BLOOD PRESSURE ABNORMAL
     Route: 048
     Dates: end: 2012
  4. LOSARTAN [Concomitant]
     Indication: BLOOD PRESSURE ABNORMAL
     Route: 048
     Dates: start: 2012
  5. OMEPRAZOLE [Concomitant]
     Indication: GASTROOESOPHAGEAL REFLUX DISEASE
  6. ATENOLOL [Concomitant]
     Route: 048
  7. LIPITOR [Concomitant]
     Indication: BLOOD CHOLESTEROL ABNORMAL
     Route: 048
  8. GABAPENTIN [Concomitant]
     Indication: PAIN IN EXTREMITY
     Dosage: UP TO 6 AS NECESSARY
     Route: 048
     Dates: start: 2012
  9. ASPIRIN [Concomitant]
     Route: 048
  10. HCTZ [Concomitant]
     Indication: BLOOD PRESSURE ABNORMAL
     Route: 048
  11. MOTRIN [Concomitant]
     Indication: PAIN
     Dosage: UP TO 3 TIMES/DAY AS NECESSARY
     Route: 048

REACTIONS (4)
  - Bone disorder [Unknown]
  - Blood pressure abnormal [Unknown]
  - Drug dose omission [Not Recovered/Not Resolved]
  - Syringe issue [Unknown]
